FAERS Safety Report 4560758-8 (Version None)
Quarter: 2005Q1

REPORT INFORMATION
  Report Type: 
  Country: None (occurrence: None)
  Receive Date: 20050125
  Receipt Date: 20050125
  Transmission Date: 20050727
  Serious: Yes (Hospitalization)
  Sender: FDA-Public Use
  Company Number: None

PATIENT
  Sex: Male
  Weight: 72.1 kg

DRUGS (2)
  1. CISPLATIN [Suspect]
     Indication: SQUAMOUS CELL CARCINOMA
     Dosage: 193MG  DAYS 1 + 22   INTRAVENOU
     Route: 042
     Dates: start: 20041213, end: 20050111
  2. RADIATION THERAPY [Suspect]
     Indication: SQUAMOUS CELL CARCINOMA
     Dosage: 180CGY   DAILY
     Dates: start: 20041213, end: 20050127

REACTIONS (4)
  - DEHYDRATION [None]
  - HYPONATRAEMIA [None]
  - ORAL FUNGAL INFECTION [None]
  - RENAL FAILURE ACUTE [None]
